FAERS Safety Report 11112348 (Version 1)
Quarter: 2015Q2

REPORT INFORMATION
  Report Type: Spontaneous
  Country: US (occurrence: None)
  Receive Date: 20150513
  Receipt Date: 20150513
  Transmission Date: 20150821
  Serious: Yes (Hospitalization, Disabling)
  Sender: FDA-Public Use
  Company Number: None

PATIENT
  Age: 50 Year
  Sex: Male
  Weight: 77.11 kg

DRUGS (4)
  1. HALOPERIDOL. [Suspect]
     Active Substance: HALOPERIDOL
     Route: 030
     Dates: start: 20150501, end: 20150512
  2. SINGULAIR [Concomitant]
     Active Substance: MONTELUKAST SODIUM
  3. DEPAKOTE [Concomitant]
     Active Substance: DIVALPROEX SODIUM
  4. PAROXETINE [Concomitant]
     Active Substance: PAROXETINE\PAROXETINE HYDROCHLORIDE

REACTIONS (5)
  - Abnormal dreams [None]
  - Fear [None]
  - Anxiety [None]
  - Nightmare [None]
  - Insomnia [None]

NARRATIVE: CASE EVENT DATE: 20150511
